FAERS Safety Report 5696003-X (Version None)
Quarter: 2008Q2

REPORT INFORMATION
  Report Type: 
  Country: None (occurrence: None)
  Receive Date: 20080407
  Receipt Date: 20080325
  Transmission Date: 20081010
  Serious: Yes (Life-Threatening, Hospitalization, Congenital Anomaly)
  Sender: FDA-Public Use
  Company Number: A0640664A

PATIENT
  Sex: Male
  Weight: 4.1 kg

DRUGS (3)
  1. PAXIL [Suspect]
     Indication: DEPRESSION
     Dosage: 20MG PER DAY
     Dates: start: 19951101, end: 19971201
  2. VITAMIN TAB [Concomitant]
  3. LITHIUM CARBONATE [Concomitant]
     Dosage: 300MG TWICE PER DAY
     Dates: start: 19951101, end: 19971201

REACTIONS (16)
  - BICUSPID AORTIC VALVE [None]
  - CARDIAC FAILURE CONGESTIVE [None]
  - CARDIAC MURMUR [None]
  - COARCTATION OF THE AORTA [None]
  - DRUG EXPOSURE DURING PREGNANCY [None]
  - EATING DISORDER [None]
  - HEART DISEASE CONGENITAL [None]
  - INJURY [None]
  - LUNG DISORDER [None]
  - PAIN [None]
  - PERSISTENT FOETAL CIRCULATION [None]
  - PULMONARY CONGESTION [None]
  - RESPIRATORY DISTRESS [None]
  - STAPHYLOCOCCAL INFECTION [None]
  - TRANSIENT TACHYPNOEA OF THE NEWBORN [None]
  - UPPER RESPIRATORY TRACT INFECTION [None]
